FAERS Safety Report 10422564 (Version 1)
Quarter: 2014Q3

REPORT INFORMATION
  Report Type: Spontaneous
  Country: US (occurrence: US)
  Receive Date: 20140901
  Receipt Date: 20140901
  Transmission Date: 20150326
  Serious: No
  Sender: FDA-Public Use
  Company Number: US-TEVA-501582USA

PATIENT
  Sex: Female

DRUGS (1)
  1. COPAXONE [Suspect]
     Active Substance: GLATIRAMER ACETATE
     Route: 065
     Dates: start: 20140715

REACTIONS (3)
  - Injection site bruising [Unknown]
  - Nervousness [Unknown]
  - Injection site pain [Unknown]

NARRATIVE: CASE EVENT DATE: 20140715
